FAERS Safety Report 16534784 (Version 2)
Quarter: 2019Q3

REPORT INFORMATION
  Report Type: Spontaneous
  Country: NL (occurrence: DK)
  Receive Date: 20190705
  Receipt Date: 20190718
  Transmission Date: 20191004
  Serious: Yes (Other)
  Sender: FDA-Public Use
  Company Number: DK-FRESENIUS KABI-FK201907254

PATIENT
  Age: 45 Year
  Sex: Male

DRUGS (9)
  1. MITOXANTRONE [Suspect]
     Active Substance: MITOXANTRONE HYDROCHLORIDE
     Indication: HISTIOCYTIC SARCOMA
     Route: 065
     Dates: start: 201901, end: 201904
  2. CARMUSTINE. [Suspect]
     Active Substance: CARMUSTINE
     Indication: HISTIOCYTIC SARCOMA
     Route: 065
     Dates: start: 201809
  3. IFOSFAMIDE. [Suspect]
     Active Substance: IFOSFAMIDE
     Indication: HISTIOCYTIC SARCOMA
     Route: 065
  4. MELPHALAN. [Suspect]
     Active Substance: MELPHALAN
     Indication: HISTIOCYTIC SARCOMA
     Route: 065
     Dates: start: 201809
  5. CYTARABINE. [Suspect]
     Active Substance: CYTARABINE
     Indication: HISTIOCYTIC SARCOMA
     Route: 065
     Dates: start: 201809
  6. CYTARABINE. [Suspect]
     Active Substance: CYTARABINE
     Indication: HISTIOCYTIC SARCOMA
     Route: 065
     Dates: start: 201901, end: 201904
  7. ETOPOSIDE (MANUFACTURER UNKNOWN) [Suspect]
     Active Substance: ETOPOSIDE
     Indication: HISTIOCYTIC SARCOMA
     Route: 065
     Dates: start: 201809
  8. CLADRIBINE. [Suspect]
     Active Substance: CLADRIBINE
     Indication: HISTIOCYTIC SARCOMA
     Route: 065
     Dates: start: 201901, end: 201904
  9. CISPLATIN. [Suspect]
     Active Substance: CISPLATIN
     Indication: HISTIOCYTIC SARCOMA
     Route: 065
     Dates: start: 201806

REACTIONS (3)
  - Histiocytic sarcoma [Unknown]
  - Metastases to skin [Unknown]
  - Acute myeloid leukaemia [Unknown]
